FAERS Safety Report 24582251 (Version 2)
Quarter: 2025Q3

REPORT INFORMATION
  Report Type: Spontaneous
  Country: CN (occurrence: CN)
  Receive Date: 20241105
  Receipt Date: 20250810
  Transmission Date: 20251021
  Serious: Yes (Other)
  Sender: ALEXION PHARMACEUTICALS
  Company Number: CN-ASTRAZENECA-202410CHN013252CN

PATIENT
  Age: 60 Year
  Sex: Female
  Weight: 56 kg

DRUGS (1)
  1. DAPAGLIFLOZIN [Suspect]
     Active Substance: DAPAGLIFLOZIN
     Indication: Cardiac disorder
     Dosage: 10 MILLIGRAM, QD
     Dates: start: 20240918, end: 20241010

REACTIONS (4)
  - Skin injury [Recovering/Resolving]
  - Perineal pain [Unknown]
  - Perineal ulceration [Unknown]
  - Effusion [Unknown]

NARRATIVE: CASE EVENT DATE: 20241002
